FAERS Safety Report 18586621 (Version 2)
Quarter: 2020Q4

REPORT INFORMATION
  Report Type: Spontaneous
  Country: US (occurrence: US)
  Receive Date: 20201207
  Receipt Date: 20201228
  Transmission Date: 20210114
  Serious: Yes (Other)
  Sender: FDA-Public Use
  Company Number: US-009507513-2012USA001242

PATIENT
  Age: 25 Year
  Sex: Female
  Weight: 93.88 kg

DRUGS (2)
  1. ZOFRAN [Concomitant]
     Active Substance: ONDANSETRON HYDROCHLORIDE
     Indication: MORNING SICKNESS
     Dosage: 4 MILLIGRAM, AS NEEDED
  2. IMPLANON [Suspect]
     Active Substance: ETONOGESTREL
     Dosage: 1 IMPLANT (68 MILLIGRAM) IN LEFT ARM
     Route: 059
     Dates: start: 2010

REACTIONS (5)
  - Incorrect product administration duration [Unknown]
  - Unintended pregnancy [Not Recovered/Not Resolved]
  - Complication associated with device [Recovered/Resolved]
  - Menstruation irregular [Unknown]
  - Pregnancy with implant contraceptive [Not Recovered/Not Resolved]

NARRATIVE: CASE EVENT DATE: 2013
